FAERS Safety Report 26177394 (Version 1)
Quarter: 2025Q4

REPORT INFORMATION
  Report Type: Spontaneous
  Country: CA (occurrence: CA)
  Receive Date: 20251219
  Receipt Date: 20251219
  Transmission Date: 20260118
  Serious: Yes (Hospitalization, Other)
  Sender: SANOFI AVENTIS
  Company Number: CA-SA-2025SA375967

PATIENT
  Age: 11 Year
  Sex: Male
  Weight: 32 kg

DRUGS (1)
  1. DUPIXENT [Suspect]
     Active Substance: DUPILUMAB
     Indication: Eczema
     Dosage: 300 MG, Q4W
     Route: 058

REACTIONS (6)
  - Cellulitis orbital [Recovering/Resolving]
  - Endocrine ophthalmopathy [Recovering/Resolving]
  - Retinal detachment [Recovering/Resolving]
  - Scleritis [Recovering/Resolving]
  - Vogt-Koyanagi-Harada disease [Recovering/Resolving]
  - Visual acuity reduced [Recovering/Resolving]
